FAERS Safety Report 9802087 (Version 1)
Quarter: 2014Q1

REPORT INFORMATION
  Report Type: Spontaneous
  Country: US (occurrence: US)
  Receive Date: 20140107
  Receipt Date: 20140107
  Transmission Date: 20141002
  Serious: No
  Sender: FDA-Public Use
  Company Number: US-BIOGENIDEC-2014BI000003

PATIENT
  Sex: Female
  Weight: 68 kg

DRUGS (9)
  1. TECFIDERA [Suspect]
     Indication: PRODUCT USED FOR UNKNOWN INDICATION
     Route: 048
  2. PROGESTERONE [Concomitant]
  3. ESTRADIOL [Concomitant]
  4. OXYBUTYNIN [Concomitant]
  5. TRAZODONE [Concomitant]
  6. CITALOPRAM [Concomitant]
  7. SOLUMEDROL [Concomitant]
  8. FOSAMAX [Concomitant]
  9. CLONAZEPAM [Concomitant]

REACTIONS (1)
  - Weight increased [Unknown]
